FAERS Safety Report 6095211-6 (Version None)
Quarter: 2009Q1

REPORT INFORMATION
  Report Type: 
  Country: None (occurrence: None)
  Receive Date: 20090227
  Receipt Date: 20080213
  Transmission Date: 20090719
  Serious: No
  Sender: FDA-Public Use
  Company Number: A0709368A

PATIENT
  Age: 57 Year
  Sex: Female
  Weight: 76.4 kg

DRUGS (3)
  1. LAMICTAL [Suspect]
     Indication: BIPOLAR DISORDER
     Dosage: 100MG PER DAY
     Route: 048
     Dates: start: 20071218, end: 20080202
  2. ZOLOFT [Concomitant]
     Indication: BIPOLAR DISORDER
     Dosage: 100MG PER DAY
     Route: 048
     Dates: start: 20020101
  3. NAPROXEN [Concomitant]
     Indication: MUSCLE INJURY
     Dosage: 500MG TWICE PER DAY
     Route: 048
     Dates: start: 20080114

REACTIONS (1)
  - HYPERTENSION [None]
